FAERS Safety Report 5331420-9 (Version None)
Quarter: 2007Q2

REPORT INFORMATION
  Report Type: 
  Country: None (occurrence: None)
  Receive Date: 20070522
  Receipt Date: 20070515
  Transmission Date: 20071010
  Serious: Yes (Death)
  Sender: FDA-Public Use
  Company Number: JP-ASTRAZENECA-2007AP02830

PATIENT
  Age: 86 Year
  Sex: Male

DRUGS (6)
  1. CRESTOR [Suspect]
     Indication: BLOOD CHOLESTEROL INCREASED
     Route: 048
     Dates: start: 20070312, end: 20070320
  2. ASPIRIN [Concomitant]
     Route: 048
     Dates: start: 20070312, end: 20070320
  3. TICLOPIDINE HCL [Concomitant]
     Route: 048
     Dates: start: 20070312, end: 20070320
  4. ARTIST [Concomitant]
     Route: 048
     Dates: start: 20070312, end: 20070320
  5. HARNAL [Concomitant]
     Indication: BENIGN PROSTATIC HYPERPLASIA
     Route: 048
  6. ERYTHROMYCIN [Concomitant]

REACTIONS (1)
  - RHABDOMYOLYSIS [None]
